FAERS Safety Report 24059103 (Version 1)
Quarter: 2024Q3

REPORT INFORMATION
  Report Type: Spontaneous
  Country: US (occurrence: US)
  Receive Date: 20240708
  Receipt Date: 20240708
  Transmission Date: 20241016
  Serious: No
  Sender: SANOFI AVENTIS
  Company Number: US-SA-SAC20240703001199

PATIENT
  Sex: Male

DRUGS (1)
  1. DUPIXENT [Suspect]
     Active Substance: DUPILUMAB
     Indication: Dermatitis atopic
     Dosage: DOSE AND FREQUENCY: - 300 MG/2ML: INJECT 300 MG UNDER THE SKIN (SUBCUTANEOUS INJECTION) EVERY 14 DAY
     Route: 058
     Dates: start: 20210917

REACTIONS (1)
  - Infection [Unknown]
